FAERS Safety Report 16681553 (Version 2)
Quarter: 2019Q3

REPORT INFORMATION
  Report Type: Spontaneous
  Country: CN (occurrence: CN)
  Receive Date: 20190808
  Receipt Date: 20190816
  Transmission Date: 20191004
  Serious: Yes (Death, Other)
  Sender: FDA-Public Use
  Company Number: CN-BAYER-2019-142844

PATIENT
  Age: 56 Year
  Sex: Male

DRUGS (4)
  1. AVELOX [Suspect]
     Active Substance: MOXIFLOXACIN HYDROCHLORIDE
     Indication: LEGIONELLA INFECTION
     Dosage: UNK
     Dates: start: 20190725, end: 2019
  2. AZITHROMYCIN ANHYDROUS. [Concomitant]
     Active Substance: AZITHROMYCIN ANHYDROUS
     Indication: LEGIONELLA INFECTION
     Dosage: UNK
     Dates: start: 20190725
  3. CIPROFLOXACIN. [Suspect]
     Active Substance: CIPROFLOXACIN
     Dosage: UNK
     Dates: start: 2019
  4. TIGECYCLINE. [Concomitant]
     Active Substance: TIGECYCLINE
     Indication: LEGIONELLA INFECTION
     Dosage: UNK
     Dates: start: 2019

REACTIONS (6)
  - Loss of consciousness [None]
  - Unresponsive to stimuli [None]
  - Death [Fatal]
  - Pyrexia [None]
  - Muscle spasms [None]
  - Epilepsy [Recovered/Resolved]

NARRATIVE: CASE EVENT DATE: 201907
